FAERS Safety Report 9437039 (Version 2)
Quarter: 2013Q3

REPORT INFORMATION
  Report Type: Spontaneous
  Country: US (occurrence: US)
  Receive Date: 20130802
  Receipt Date: 20130917
  Transmission Date: 20140515
  Serious: Yes (Other)
  Sender: FDA-Public Use
  Company Number: US-PFIZER INC-2013221841

PATIENT
  Age: 55 Year
  Sex: Female
  Weight: 62.6 kg

DRUGS (4)
  1. PREMPRO [Suspect]
     Indication: MENOPAUSAL SYMPTOMS
     Dosage: 0.45/1.5 MG, 1X/DAY
     Route: 048
     Dates: start: 201306, end: 20130719
  2. PREMPRO [Suspect]
     Indication: HOT FLUSH
  3. KLONOPIN [Concomitant]
     Indication: ANXIETY
     Dosage: 0.5 MG, DAILY
  4. KLONOPIN [Concomitant]
     Indication: SLEEP DISORDER

REACTIONS (4)
  - Vaginal haemorrhage [Recovered/Resolved]
  - Back pain [Recovered/Resolved]
  - Abdominal pain lower [Recovered/Resolved]
  - Nausea [Recovered/Resolved]
